FAERS Safety Report 11046745 (Version 1)
Quarter: 2015Q2

REPORT INFORMATION
  Report Type: Report from Study
  Country: NL (occurrence: NL)
  Receive Date: 20150420
  Receipt Date: 20150420
  Transmission Date: 20150821
  Serious: Yes (Hospitalization)
  Sender: FDA-Public Use
  Company Number: NL-ROCHE-1564914

PATIENT
  Age: 58 Year
  Sex: Male
  Weight: 85.2 kg

DRUGS (4)
  1. OXALIPLATIN. [Suspect]
     Active Substance: OXALIPLATIN
     Indication: GASTRIC CANCER
     Dosage: LAST DOSE PRIOR TO SAE ON 27/NOV/2014?CUMULATIVE DOSE 1200 MG
     Route: 042
     Dates: start: 20140814
  2. CAPECITABINE. [Suspect]
     Active Substance: CAPECITABINE
     Indication: GASTRIC CANCER
     Dosage: LAST DOSE PRIOR TO SAE ON 27/NOV/2014?CUMULATIVE DOSE 581200 MG
     Route: 048
     Dates: start: 20140814
  3. DOCETAXEL. [Suspect]
     Active Substance: DOCETAXEL
     Indication: GASTRIC CANCER
     Dosage: LAST DOSE PRIOR TO SAE ON 27/NOV/2014?CUMULATIVE DOSE 600 MG
     Route: 042
     Dates: start: 20140814
  4. BEVACIZUMAB [Suspect]
     Active Substance: BEVACIZUMAB
     Indication: GASTRIC CANCER
     Dosage: LAST DOSE PRIOR TO SAE ON 08/APR/2015?CUMULATIVE DOSE 7290 MG
     Route: 042
     Dates: start: 20140814

REACTIONS (1)
  - Dysphagia [Recovered/Resolved]

NARRATIVE: CASE EVENT DATE: 20150413
